FAERS Safety Report 25080175 (Version 1)
Quarter: 2025Q1

REPORT INFORMATION
  Report Type: Spontaneous
  Country: ES (occurrence: ES)
  Receive Date: 20250314
  Receipt Date: 20250314
  Transmission Date: 20250409
  Serious: Yes (Life-Threatening, Hospitalization, Disabling, Other)
  Sender: MERCK SHARP & DOHME LLC
  Company Number: ES-009507513-2259574

PATIENT
  Age: 66 Year
  Sex: Male
  Weight: 66 kg

DRUGS (4)
  1. PEMBROLIZUMAB [Suspect]
     Active Substance: PEMBROLIZUMAB
     Indication: Non-small cell lung cancer
  2. PEMBROLIZUMAB [Suspect]
     Active Substance: PEMBROLIZUMAB
     Indication: Non-small cell lung cancer
  3. PACLITAXEL [Suspect]
     Active Substance: PACLITAXEL
  4. CARBOPLATIN [Suspect]
     Active Substance: CARBOPLATIN

REACTIONS (1)
  - Myasthenic syndrome [Recovering/Resolving]

NARRATIVE: CASE EVENT DATE: 20250225
